FAERS Safety Report 4704401-3 (Version None)
Quarter: 2005Q2

REPORT INFORMATION
  Report Type: 
  Country: None (occurrence: None)
  Receive Date: 20050630
  Receipt Date: 20050530
  Transmission Date: 20051028
  Serious: Yes (Other)
  Sender: FDA-Public Use
  Company Number: FR-GLAXOSMITHKLINE-B0383554A

PATIENT
  Age: 33 Year
  Sex: Female

DRUGS (1)
  1. IMIGRANE [Suspect]
     Indication: MIGRAINE
     Dosage: 50MG TWICE PER DAY
     Route: 048

REACTIONS (2)
  - DRUG DEPENDENCE [None]
  - HEADACHE [None]
